FAERS Safety Report 4848611-3 (Version None)
Quarter: 2005Q4

REPORT INFORMATION
  Report Type: 
  Country: None (occurrence: None)
  Receive Date: 20051206
  Receipt Date: 20051123
  Transmission Date: 20060501
  Serious: Yes (Other)
  Sender: FDA-Public Use
  Company Number: 2005099629

PATIENT
  Sex: Male

DRUGS (3)
  1. NEURONTIN [Suspect]
     Indication: RADICULOPATHY
     Dosage: 600 MG (300 MG, 2 IN 1 D), ORAL
     Route: 048
     Dates: start: 20040101, end: 20040101
  2. CARDIOVASCULAR SYSTEM DRUGS (CARDIOVASCULAR SYSTEM DRUGS) [Concomitant]
  3. ANTIHYPERTENSIVES (ANTIHYPERTENSIVES) [Concomitant]

REACTIONS (3)
  - PAIN [None]
  - SIMPLE PARTIAL SEIZURES [None]
  - TREATMENT NONCOMPLIANCE [None]
